FAERS Safety Report 10362064 (Version 1)
Quarter: 2014Q3

REPORT INFORMATION
  Report Type: Spontaneous
  Country: CA (occurrence: CA)
  Receive Date: 20140805
  Receipt Date: 20140805
  Transmission Date: 20150326
  Serious: Yes (Other)
  Sender: FDA-Public Use
  Company Number: CA-ROCHE-1443856

PATIENT
  Age: 51 Year
  Sex: Male
  Weight: 75 kg

DRUGS (6)
  1. PEGASYS [Suspect]
     Active Substance: PEGINTERFERON ALFA-2A
     Indication: PRODUCT USED FOR UNKNOWN INDICATION
     Dosage: 92 DAY THERAPY DURATION
     Route: 058
  2. VICTRELIS [Suspect]
     Active Substance: BOCEPREVIR
     Indication: PRODUCT USED FOR UNKNOWN INDICATION
     Dosage: 65 DAY THERAPY DURATION
     Route: 048
  3. TYLENOL [Concomitant]
     Active Substance: ACETAMINOPHEN
  4. RIBAVIRIN. [Suspect]
     Active Substance: RIBAVIRIN
     Indication: PRODUCT USED FOR UNKNOWN INDICATION
     Dosage: 95 DAY THERAPY DURATION
     Route: 048
  5. TECTA [Concomitant]
     Active Substance: PANTOPRAZOLE MAGNESIUM
     Route: 065
  6. ADVIL [Concomitant]
     Active Substance: IBUPROFEN

REACTIONS (9)
  - Metastases to lymph nodes [Unknown]
  - Oesophageal neoplasm [Unknown]
  - Adenocarcinoma gastric [Unknown]
  - Faeces discoloured [Unknown]
  - Metastases to central nervous system [Unknown]
  - Tumour necrosis [Unknown]
  - Gastric neoplasm [Unknown]
  - Headache [Unknown]
  - Rectal haemorrhage [Unknown]
